FAERS Safety Report 7960615-0 (Version None)
Quarter: 2011Q4

REPORT INFORMATION
  Report Type: 
  Country: None (occurrence: None)
  Receive Date: 20111206
  Receipt Date: 20111201
  Transmission Date: 20120403
  Serious: Yes (Hospitalization, Other)
  Sender: FDA-Public Use
  Company Number: US-MERCK-1107USA02530

PATIENT
  Age: 63 Year
  Sex: Female
  Weight: 68 kg

DRUGS (5)
  1. FOSAMAX [Suspect]
     Route: 048
     Dates: start: 20010712
  2. FOSAMAX [Suspect]
     Indication: OSTEOPOROSIS
     Route: 048
     Dates: start: 19980801, end: 20090601
  3. [THERAPY UNSPECIFIED] [Concomitant]
     Route: 065
     Dates: start: 19910101
  4. CALCIUM (UNSPECIFIED) [Concomitant]
     Route: 065
     Dates: start: 19910101
  5. VITAMINS (UNSPECIFIED) [Concomitant]
     Route: 065
     Dates: start: 19910101

REACTIONS (55)
  - DIVERTICULUM [None]
  - SPINAL CORD DISORDER [None]
  - ARTHROPATHY [None]
  - GAIT DISTURBANCE [None]
  - EXTRASYSTOLES [None]
  - NEOPLASM MALIGNANT [None]
  - UTEROVAGINAL PROLAPSE [None]
  - BALANCE DISORDER [None]
  - CAROTID BRUIT [None]
  - DIARRHOEA [None]
  - VITAMIN B12 DEFICIENCY [None]
  - VENTRICULAR EXTRASYSTOLES [None]
  - ORAL INFECTION [None]
  - DENTAL CARIES [None]
  - IMPAIRED HEALING [None]
  - ABDOMINAL PAIN UPPER [None]
  - SPLENIC GRANULOMA [None]
  - LUMBAR RADICULOPATHY [None]
  - CHOLELITHIASIS [None]
  - FRACTURE NONUNION [None]
  - HAEMANGIOMA OF LIVER [None]
  - INTERVERTEBRAL DISC PROTRUSION [None]
  - SPINAL COMPRESSION FRACTURE [None]
  - FALL [None]
  - TOOTH DISORDER [None]
  - DYSPNOEA [None]
  - IIIRD NERVE PARESIS [None]
  - FATIGUE [None]
  - VOMITING [None]
  - SKIN DISORDER [None]
  - PAIN IN EXTREMITY [None]
  - ORAL DISORDER [None]
  - NAUSEA [None]
  - CERVICAL SPINAL STENOSIS [None]
  - BONE DISORDER [None]
  - ANAEMIA [None]
  - FEMUR FRACTURE [None]
  - FLANK PAIN [None]
  - OSTEOPENIA [None]
  - ORAL TORUS [None]
  - NEUROPATHY PERIPHERAL [None]
  - MOUTH ULCERATION [None]
  - UTERINE PROLAPSE [None]
  - BREAST MASS [None]
  - HYPOAESTHESIA [None]
  - BURSITIS [None]
  - PATHOLOGICAL FRACTURE [None]
  - BREAST CANCER [None]
  - FALLOPIAN TUBE DISORDER [None]
  - HYPOTHYROIDISM [None]
  - HYDROMYELIA [None]
  - SPINAL COLUMN STENOSIS [None]
  - NAIL DISORDER [None]
  - PAIN [None]
  - SPINAL OSTEOARTHRITIS [None]
